FAERS Safety Report 7342653-4 (Version None)
Quarter: 2011Q1

REPORT INFORMATION
  Report Type: 
  Country: None (occurrence: None)
  Receive Date: 20110310
  Receipt Date: 20110128
  Transmission Date: 20110831
  Serious: Yes (Hospitalization)
  Sender: FDA-Public Use
  Company Number: US-BAYER-2011-020937

PATIENT
  Sex: Female
  Weight: 73 kg

DRUGS (4)
  1. YASMIN [Suspect]
     Indication: CONTRACEPTION
     Dosage: UNK
     Dates: start: 20040315, end: 20080302
  2. YASMIN [Suspect]
     Indication: OVARIAN CYST
  3. OCELLA [Suspect]
     Indication: CONTRACEPTION
     Dosage: UNK
     Dates: start: 20080806, end: 20080918
  4. OCELLA [Suspect]
     Indication: OVARIAN CYST

REACTIONS (2)
  - PAIN [None]
  - VOMITING [None]
